FAERS Safety Report 7959037-8 (Version None)
Quarter: 2011Q4

REPORT INFORMATION
  Report Type: 
  Country: None (occurrence: None)
  Receive Date: 20111206
  Receipt Date: 20111202
  Transmission Date: 20120403
  Serious: Yes (Other)
  Sender: FDA-Public Use
  Company Number: CA-PFIZER INC-2011294438

PATIENT
  Sex: Female

DRUGS (1)
  1. CELEBREX [Suspect]
     Dosage: 100 MG, 2X/DAY
     Dates: start: 20111117, end: 20111201

REACTIONS (8)
  - SWELLING FACE [None]
  - DIZZINESS [None]
  - BLISTER [None]
  - DYSPHAGIA [None]
  - MALAISE [None]
  - RASH [None]
  - THROAT TIGHTNESS [None]
  - SKIN BURNING SENSATION [None]
